FAERS Safety Report 20065514 (Version 4)
Quarter: 2022Q2

REPORT INFORMATION
  Report Type: Spontaneous
  Country: GB (occurrence: GB)
  Receive Date: 20211113
  Receipt Date: 20220401
  Transmission Date: 20220721
  Serious: Yes (Hospitalization, Other)
  Sender: FDA-Public Use
  Company Number: GB-NOVARTISPH-NVSC2021GB254933

PATIENT
  Age: 0 Year
  Sex: Female
  Weight: 6.46 kg

DRUGS (3)
  1. ZOLGENSMA [Suspect]
     Active Substance: ONASEMNOGENE ABEPARVOVEC-XIOI
     Indication: Spinal muscular atrophy
     Dosage: UNK UNK, ONCE/SINGLE (7.7X10^14VG) (38.5 ML) (SOURCE: PRESCRIPTION)
     Route: 042
     Dates: start: 20210630, end: 20210630
  2. PREDNISOLONE [Concomitant]
     Active Substance: PREDNISOLONE
     Indication: Product used for unknown indication
     Dosage: 6.5 MG
     Route: 065
     Dates: start: 20210629, end: 20210826
  3. LANSOPRAZOLE [Concomitant]
     Active Substance: LANSOPRAZOLE
     Indication: Product used for unknown indication
     Dosage: 3.75 MG
     Route: 065
     Dates: start: 20210629, end: 20210826

REACTIONS (3)
  - Metapneumovirus infection [Unknown]
  - Thrombocytopenia [Recovered/Resolved]
  - Haematocrit increased [Recovering/Resolving]

NARRATIVE: CASE EVENT DATE: 20210712
